FAERS Safety Report 15383640 (Version 2)
Quarter: 2018Q4

REPORT INFORMATION
  Report Type: Spontaneous
  Country: US (occurrence: US)
  Receive Date: 20180913
  Receipt Date: 20181012
  Transmission Date: 20190204
  Serious: Yes (Hospitalization, Other)
  Sender: FDA-Public Use
  Company Number: US-GILEAD-2018-0362791

PATIENT
  Age: 29 Year
  Sex: Male
  Weight: 68.5 kg

DRUGS (8)
  1. YESCARTA [Suspect]
     Active Substance: AXICABTAGENE CILOLEUCEL
     Indication: DIFFUSE LARGE B-CELL LYMPHOMA
     Dosage: 2 X 10^8 CELLS
     Route: 042
     Dates: start: 20180515, end: 20180515
  2. NOXAFIL [Concomitant]
     Active Substance: POSACONAZOLE
  3. LEVETIRACETAM. [Concomitant]
     Active Substance: LEVETIRACETAM
     Dosage: UNK
     Dates: start: 20180515
  4. LEVOFLOXACIN. [Concomitant]
     Active Substance: LEVOFLOXACIN
  5. PENTAMIDINE [Concomitant]
     Active Substance: PENTAMIDINE
  6. AMOXICILLIN AND CLAVULANATE POTASSIUM [Concomitant]
     Active Substance: AMOXICILLIN\CLAVULANATE POTASSIUM
  7. ACYCLOVIR                          /00587301/ [Concomitant]
     Active Substance: ACYCLOVIR
     Dosage: UNK
     Dates: start: 20180515
  8. OXYCODONE [Concomitant]
     Active Substance: OXYCODONE

REACTIONS (10)
  - Cytokine release syndrome [Recovered/Resolved]
  - Neutrophil count decreased [Unknown]
  - Diarrhoea [Unknown]
  - Tachycardia [Unknown]
  - Neurotoxicity [Recovered/Resolved]
  - Hypotension [Unknown]
  - Localised oedema [Unknown]
  - Blood culture positive [Recovered/Resolved]
  - Tachypnoea [Unknown]
  - Pyrexia [Recovered/Resolved]

NARRATIVE: CASE EVENT DATE: 201805
